FAERS Safety Report 20663787 (Version 1)
Quarter: 2022Q2

REPORT INFORMATION
  Report Type: Spontaneous
  Country: FR (occurrence: FR)
  Receive Date: 20220401
  Receipt Date: 20220401
  Transmission Date: 20220721
  Serious: Yes (Death)
  Sender: FDA-Public Use
  Company Number: None

PATIENT
  Age: 75 Year
  Sex: Male
  Weight: 80 kg

DRUGS (13)
  1. ATORVASTATIN [Suspect]
     Active Substance: ATORVASTATIN
     Indication: Dyslipidaemia
     Dosage: UNIT DOSE 40MG,FREQUENCY TIME 1 DAY, DURATION 5 MONTHS
     Route: 048
     Dates: start: 202110, end: 20220301
  2. GLICLAZIDE [Suspect]
     Active Substance: GLICLAZIDE
     Indication: Type 2 diabetes mellitus
     Dosage: UNIT DOSE 60MG,FREQUENCY TIME 1 DAYS
     Route: 048
     Dates: end: 20220301
  3. LEVOFLOXACIN [Suspect]
     Active Substance: LEVOFLOXACIN
     Indication: Urinary tract infection
     Dosage: UNIT DOSE 500MG,FREQUENCY TIME 1 DAY, DURATION 18 DAYS
     Route: 048
     Dates: start: 20220211, end: 20220301
  4. ISONIAZID\RIFAMPIN [Suspect]
     Active Substance: ISONIAZID\RIFAMPIN
     Indication: Interferon gamma release assay positive
     Dosage: RIFINAH 300 MG/150 MG, COATED TABLET,UNIT DOSE 2 DF,FREQUENCY TIME 1 DAYS, DURATION 68 DAYS
     Route: 048
     Dates: start: 20211223, end: 20220301
  5. PREDNISOLONE SODIUM METAZOATE [Suspect]
     Active Substance: PREDNISOLONE SODIUM METAZOATE
     Indication: Colitis
     Dosage: UNIT DOSE 20MG,FREQUENCY TIME 1 DAYS,DURATION 4 MONTHS,SOLUPRED 20 MG, ORODISPERSIBLE TABLET
     Route: 048
     Dates: start: 202111, end: 20220301
  6. KEYTRUDA [Suspect]
     Active Substance: PEMBROLIZUMAB
     Indication: Lung squamous cell carcinoma stage IV
     Dosage: 5TH CURE, UNIT DOSE 200MG,FREQUENCY TIME 1 DAYS,DURATION 1 DAYS
     Route: 042
     Dates: start: 20220211, end: 20220211
  7. KARDEGIC [Suspect]
     Active Substance: ASPIRIN DL-LYSINE
     Indication: Product used for unknown indication
     Dosage: UNIT DOSE 1 DF,FREQUENCY TIME 1 DAYS; KARDEGIC 75 MG, POWDER FOR ORAL SOLUTION IN SACHET-DOSE
     Route: 048
     Dates: end: 20220301
  8. METFORMIN PAMOATE [Suspect]
     Active Substance: METFORMIN PAMOATE
     Indication: Type 2 diabetes mellitus
     Dosage: 3 DOSAGE FORMS DAILY; 1CP 3/D; STAGID 700 MG, SCORED TABLET
     Route: 048
     Dates: end: 20220301
  9. INSULIN GLARGINE [Concomitant]
     Active Substance: INSULIN GLARGINE
  10. BISOPROLOL FUMARATE [Concomitant]
     Active Substance: BISOPROLOL FUMARATE
  11. ZOPICLONE [Concomitant]
     Active Substance: ZOPICLONE
  12. PERINDOPRIL [Concomitant]
     Active Substance: PERINDOPRIL
  13. LEVOTHYROXINE [Concomitant]
     Active Substance: LEVOTHYROXINE

REACTIONS (1)
  - Hepatitis fulminant [Fatal]

NARRATIVE: CASE EVENT DATE: 20220228
